FAERS Safety Report 4972046-6 (Version None)
Quarter: 2006Q2

REPORT INFORMATION
  Report Type: 
  Country: None (occurrence: None)
  Receive Date: 20060413
  Receipt Date: 20060126
  Transmission Date: 20061013
  Serious: Yes (Hospitalization)
  Sender: FDA-Public Use
  Company Number: FR-ROCHE-434161

PATIENT
  Age: 45 Year
  Sex: Male
  Weight: 51 kg

DRUGS (8)
  1. FUZEON [Suspect]
     Dosage: FORMULATION = INJECTABLE SOLUTION
     Route: 058
     Dates: start: 20021129
  2. FUZEON [Suspect]
     Route: 058
  3. ROVALCYTE [Suspect]
     Indication: DRUG USE FOR UNKNOWN INDICATION
     Route: 065
     Dates: end: 20060218
  4. ROVALCYTE [Suspect]
     Route: 065
  5. TMC 114 [Concomitant]
  6. TRUVADA [Concomitant]
  7. NORVIR [Concomitant]
  8. UNSPECIFIED DRUG [Concomitant]
     Dosage: DRUG NAME ILLEGIBLE (^NBASOXAMIDE^).

REACTIONS (16)
  - ANAEMIA [None]
  - BLOOD DISORDER [None]
  - CHEST X-RAY ABNORMAL [None]
  - CHOLESTASIS [None]
  - CYTOLYTIC HEPATITIS [None]
  - DRUG TOXICITY [None]
  - GASTRIC HAEMORRHAGE [None]
  - HAEMATOTOXICITY [None]
  - HYPERLIPIDAEMIA [None]
  - HYPOCALCAEMIA [None]
  - HYPOKALAEMIA [None]
  - HYPOPHOSPHATAEMIA [None]
  - INJECTION SITE NODULE [None]
  - INJECTION SITE PAIN [None]
  - LYMPHOMA [None]
  - OESOPHAGEAL CANDIDIASIS [None]
